FAERS Safety Report 18314074 (Version 1)
Quarter: 2020Q3

REPORT INFORMATION
  Report Type: Spontaneous
  Country: US (occurrence: US)
  Receive Date: 20200925
  Receipt Date: 20200925
  Transmission Date: 20201103
  Serious: Yes (Death)
  Sender: FDA-Public Use
  Company Number: US-ROCHE-2684344

PATIENT
  Age: 84 Year
  Sex: Male

DRUGS (22)
  1. LUCENTIS [Suspect]
     Active Substance: RANIBIZUMAB
  2. ATORVASTATIN [Concomitant]
     Active Substance: ATORVASTATIN
  3. METFORMIN HYDROCHLORIDE. [Concomitant]
     Active Substance: METFORMIN HYDROCHLORIDE
  4. LUCENTIS [Suspect]
     Active Substance: RANIBIZUMAB
  5. LANTUS [Concomitant]
     Active Substance: INSULIN GLARGINE
  6. MUPIROCIN. [Concomitant]
     Active Substance: MUPIROCIN
  7. LUCENTIS [Suspect]
     Active Substance: RANIBIZUMAB
  8. LUCENTIS [Suspect]
     Active Substance: RANIBIZUMAB
  9. LANTUS SOLOSTAR [Concomitant]
     Active Substance: INSULIN GLARGINE
  10. LEVOTHYROXIN [Concomitant]
     Active Substance: LEVOTHYROXINE
     Dosage: 50 MCG
  11. LISINOPRIL. [Concomitant]
     Active Substance: LISINOPRIL
  12. LUCENTIS [Suspect]
     Active Substance: RANIBIZUMAB
     Indication: MACULAR OEDEMA
  13. DONEPEZIL. [Concomitant]
     Active Substance: DONEPEZIL
  14. DONEPEZIL. [Concomitant]
     Active Substance: DONEPEZIL
  15. MEMANTINE HCL [Concomitant]
     Active Substance: MEMANTINE
  16. AMMONIUM LACTATE. [Concomitant]
     Active Substance: AMMONIUM LACTATE
  17. ASPIRIN. [Concomitant]
     Active Substance: ASPIRIN
     Dosage: 81 MG EC
  18. MEMANTINE HCL [Concomitant]
     Active Substance: MEMANTINE
  19. LUCENTIS [Suspect]
     Active Substance: RANIBIZUMAB
     Indication: DIABETIC RETINOPATHY
     Dosage: INJECT INTO BOTH EYES, PFS 0.3 MG 0.05 ML
     Route: 050
  20. CIPRODEX (UNITED STATES) [Concomitant]
  21. TRADJENTA [Concomitant]
     Active Substance: LINAGLIPTIN
  22. KETOCONAZOLE. [Concomitant]
     Active Substance: KETOCONAZOLE

REACTIONS (1)
  - Death [Fatal]

NARRATIVE: CASE EVENT DATE: 20200828
